FAERS Safety Report 7746201-6 (Version None)
Quarter: 2011Q3

REPORT INFORMATION
  Report Type: 
  Country: None (occurrence: None)
  Receive Date: 20110913
  Receipt Date: 20110830
  Transmission Date: 20111222
  Serious: Yes (Hospitalization)
  Sender: FDA-Public Use
  Company Number: GB-ROCHE-799756

PATIENT
  Sex: Female

DRUGS (6)
  1. IBANDRONATE SODIUM [Suspect]
     Route: 065
     Dates: start: 20101218, end: 20101228
  2. SENOKOT [Suspect]
     Route: 048
     Dates: start: 20101227
  3. MOVIPREP [Concomitant]
     Dosage: TOTAL DAILY DOSE: 1 SACHET
     Route: 048
  4. IBANDRONATE SODIUM [Suspect]
     Indication: BREAST CANCER METASTATIC
     Route: 065
     Dates: start: 20100810, end: 20101215
  5. MORPHINE [Suspect]
     Dosage: DRUG MST
     Route: 048
     Dates: start: 20100708
  6. MORPHINE [Suspect]
     Dosage: DRUG: OROMORPH
     Route: 048
     Dates: start: 20100708

REACTIONS (1)
  - DEHYDRATION [None]
